FAERS Safety Report 7244640-3 (Version None)
Quarter: 2011Q1

REPORT INFORMATION
  Report Type: 
  Country: None (occurrence: None)
  Receive Date: 20110125
  Receipt Date: 20100309
  Transmission Date: 20110831
  Serious: No
  Sender: FDA-Public Use
  Company Number: US-MYLANLABS-2010S1002797

PATIENT
  Age: 31 Year
  Sex: Female

DRUGS (5)
  1. FENOFIBRATE [Suspect]
     Indication: HYPERTRIGLYCERIDAEMIA
     Route: 048
     Dates: start: 20091120
  2. SULFACET /00677901/ [Concomitant]
     Dosage: 10%-5%
     Route: 061
  3. KETOTIFEN FUMARATE [Concomitant]
     Route: 047
  4. CLARAVIS [Concomitant]
     Indication: ACNE
     Route: 048
  5. LORATADINE [Concomitant]
     Route: 048

REACTIONS (2)
  - ABDOMINAL DISCOMFORT [None]
  - NAUSEA [None]
